FAERS Safety Report 8334918-4 (Version None)
Quarter: 2012Q2

REPORT INFORMATION
  Report Type: 
  Country: None (occurrence: None)
  Receive Date: 20120503
  Receipt Date: 20100305
  Transmission Date: 20120825
  Serious: No
  Sender: FDA-Public Use
  Company Number: US-TEVA-2010001318

PATIENT
  Sex: Female
  Weight: 67.192 kg

DRUGS (8)
  1. ESTRADIOL [Concomitant]
     Indication: HORMONE REPLACEMENT THERAPY
     Dates: start: 20080101
  2. PROMETRIUM [Concomitant]
     Indication: HORMONE REPLACEMENT THERAPY
     Dates: start: 20080101
  3. LYRICA [Concomitant]
     Indication: FIBROMYALGIA
     Dates: start: 20051101
  4. ALPRAZOLAM [Concomitant]
     Dates: start: 19850101
  5. PROTONIX [Concomitant]
     Dosage: 40 MILLIGRAM;
     Dates: start: 20100101
  6. NUVIGIL [Suspect]
     Indication: FATIGUE
     Dosage: 150 MILLIGRAM;
     Route: 048
     Dates: start: 20100101, end: 20100101
  7. NUVIGIL [Suspect]
     Indication: FIBROMYALGIA
  8. VICODIN [Concomitant]
     Indication: BACK PAIN
     Dates: start: 20080101

REACTIONS (2)
  - FEELING ABNORMAL [None]
  - POOR QUALITY SLEEP [None]
